FAERS Safety Report 8818700 (Version 1)
Quarter: 2012Q4

REPORT INFORMATION
  Report Type: 
  Country: US (occurrence: US)
  Receive Date: 20121001
  Receipt Date: 20121001
  Transmission Date: 20130627
  Serious: No
  Sender: FDA-Public Use
  Company Number: US-BAYER-2012-099839

PATIENT
  Sex: Female

DRUGS (2)
  1. MENOSTAR [Suspect]
     Dosage: UNK
     Route: 062
  2. PROMETRIUM [Concomitant]
     Dosage: 100 mg, QD

REACTIONS (1)
  - Hyperhidrosis [None]
